FAERS Safety Report 6661582-2 (Version None)
Quarter: 2010Q1

REPORT INFORMATION
  Report Type: 
  Country: None (occurrence: None)
  Receive Date: 20100331
  Receipt Date: 20090402
  Transmission Date: 20100710
  Serious: Yes (Life-Threatening)
  Sender: FDA-Public Use
  Company Number: US-BRISTOL-MYERS SQUIBB COMPANY-14416739

PATIENT
  Age: 71 Year
  Sex: Female

DRUGS (11)
  1. ERBITUX [Suspect]
     Indication: COLORECTAL CANCER
     Dosage: FIRST INFUSION
  2. OXYCONTIN [Concomitant]
  3. ACETAMINOPHEN AND HYDROCODONE BITARTRATE [Concomitant]
  4. LEVOTHYROXINE SODIUM [Concomitant]
     Route: 048
  5. COMPAZINE [Concomitant]
     Route: 048
  6. LOMOTIL [Concomitant]
     Route: 048
  7. ALDACTONE [Concomitant]
     Route: 048
  8. EPINEPHRINE [Concomitant]
  9. SOLU-MEDROL [Concomitant]
     Dosage: 1DF=125(UNITS NOT SPECIFIED).
     Route: 042
  10. TYLENOL-500 [Concomitant]
     Indication: PREMEDICATION
  11. BENADRYL [Concomitant]
     Indication: PREMEDICATION
     Route: 042

REACTIONS (1)
  - CARDIAC ARREST [None]
